FAERS Safety Report 21970753 (Version 4)
Quarter: 2023Q2

REPORT INFORMATION
  Report Type: Report from Study
  Country: NL (occurrence: None)
  Receive Date: 20230209
  Receipt Date: 20230619
  Transmission Date: 20230722
  Serious: Yes (Hospitalization)
  Sender: FDA-Public Use
  Company Number: NL-ROCHE-3280080

PATIENT
  Age: 82 Year
  Sex: Male
  Weight: 79.5 kg

DRUGS (31)
  1. RITUXIMAB [Suspect]
     Active Substance: RITUXIMAB
     Indication: Diffuse large B-cell lymphoma stage III
     Route: 041
     Dates: start: 20221008, end: 20221008
  2. RITUXIMAB [Suspect]
     Active Substance: RITUXIMAB
     Route: 041
     Dates: start: 20221108, end: 20221108
  3. RITUXIMAB [Suspect]
     Active Substance: RITUXIMAB
     Indication: Diffuse large B-cell lymphoma stage III
     Route: 058
     Dates: start: 20221129, end: 20221220
  4. EPCORITAMAB [Suspect]
     Active Substance: EPCORITAMAB
     Indication: Diffuse large B-cell lymphoma stage III
     Route: 058
     Dates: start: 20221108, end: 20221108
  5. EPCORITAMAB [Suspect]
     Active Substance: EPCORITAMAB
     Dosage: SINGLE
     Route: 058
     Dates: start: 20221115, end: 20221115
  6. EPCORITAMAB [Suspect]
     Active Substance: EPCORITAMAB
     Route: 058
     Dates: start: 20221122, end: 20221213
  7. EPCORITAMAB [Suspect]
     Active Substance: EPCORITAMAB
     Dosage: SUBSEQUENT DOSE (48 MG SC, EVERY 3 WEEK) OF EPCORITAMAB WAS ADMINISTERED ON 23/JAN/2023
     Route: 058
     Dates: start: 20221220, end: 20221220
  8. EPCORITAMAB [Suspect]
     Active Substance: EPCORITAMAB
     Route: 058
     Dates: start: 20230123
  9. DOXORUBICIN HYDROCHLORIDE [Suspect]
     Active Substance: DOXORUBICIN HYDROCHLORIDE
     Indication: Diffuse large B-cell lymphoma stage III
     Dosage: SUBSEQUENT DOSE (INTRAVENOUSLY, 25 MG/M2, EVERY 3 WEEK OF DOXORUBICIN HYDROCHLORIDE) WAS ADMINISTERE
     Route: 042
     Dates: start: 20221108, end: 20221220
  10. VINCRISTINE SULFATE [Suspect]
     Active Substance: VINCRISTINE SULFATE
     Indication: Diffuse large B-cell lymphoma stage III
     Dosage: SUBSEQUENT DOSE (INTRAVENOUSLY, 1 MG/M2, EVERY 3 WEEK OF VINCRISTINE SULPHATE) WAS ADMINISTERED ON 2
     Route: 042
     Dates: start: 20221108, end: 20221220
  11. PREDNISOLONE [Suspect]
     Active Substance: PREDNISOLONE
     Indication: Diffuse large B-cell lymphoma stage III
     Route: 048
     Dates: start: 20221108, end: 20221112
  12. PREDNISOLONE [Suspect]
     Active Substance: PREDNISOLONE
     Route: 048
     Dates: start: 20221129, end: 20221203
  13. PREDNISOLONE [Suspect]
     Active Substance: PREDNISOLONE
     Dosage: SUBSEQUENT DOSE (ORAL, 80 MG .ONCE A DAY OF PREDNISOLONE) WAS ADMINISTERED ON 23/JAN/2023.
     Route: 048
     Dates: start: 20221220, end: 20221224
  14. PREDNISOLONE [Suspect]
     Active Substance: PREDNISOLONE
     Route: 048
     Dates: start: 20230123, end: 20230127
  15. CYCLOPHOSPHAMIDE [Suspect]
     Active Substance: CYCLOPHOSPHAMIDE
     Indication: Diffuse large B-cell lymphoma stage III
     Dosage: SUBSEQUENT DOSE (INTRAVENOUSLYN 400 MG/M2, EVERY 3 WEEKS) OF CYCLOPHOSPHAMIDE WAS ADMINISTERED ON 23
     Route: 042
     Dates: start: 20221108, end: 20221220
  16. CYCLOPHOSPHAMIDE [Suspect]
     Active Substance: CYCLOPHOSPHAMIDE
     Route: 042
     Dates: start: 20230123
  17. PREDNISOLONE [Concomitant]
     Active Substance: PREDNISOLONE
     Dates: start: 20221227, end: 20221230
  18. PREDNISOLONE [Concomitant]
     Active Substance: PREDNISOLONE
     Route: 048
     Dates: start: 20230123
  19. CALCIUM CARBONATE [Concomitant]
     Active Substance: CALCIUM CARBONATE
     Dates: start: 20221102, end: 20230107
  20. CICLOPIROX [Concomitant]
     Active Substance: CICLOPIROX
     Dates: start: 20221115
  21. POLYETHYLENE GLYCOLS [Concomitant]
     Active Substance: POLYETHYLENE GLYCOLS
     Dates: start: 20221107
  22. METOCLOPRAMIDE [Concomitant]
     Active Substance: METOCLOPRAMIDE
  23. METOPROLOL [Concomitant]
     Active Substance: METOPROLOL
     Dates: start: 20221011
  24. PANTOPRAZOLE [Concomitant]
     Active Substance: PANTOPRAZOLE
     Dates: start: 20221027
  25. SODIUM PHOSPHATE [Concomitant]
     Active Substance: SODIUM PHOSPHATE
     Dates: start: 20221123, end: 20230104
  26. PRAVASTATIN [Concomitant]
     Active Substance: PRAVASTATIN
     Dates: start: 20221011
  27. TAMSULOSIN HYDROCHLORIDE [Concomitant]
     Active Substance: TAMSULOSIN HYDROCHLORIDE
     Dates: start: 20221117
  28. VALACYCLOVIR HYDROCHLORIDE [Concomitant]
     Active Substance: VALACYCLOVIR HYDROCHLORIDE
     Dates: start: 20221129, end: 20221206
  29. NADROPARIN [Concomitant]
     Active Substance: NADROPARIN
     Dates: start: 20230103
  30. CARBASPIRIN CALCIUM [Concomitant]
     Active Substance: CARBASPIRIN CALCIUM
     Dates: start: 20221011
  31. FOLIC ACID [Concomitant]
     Active Substance: FOLIC ACID
     Dates: start: 20230104, end: 20230118

REACTIONS (2)
  - Toxicity to various agents [Recovered/Resolved]
  - Pneumonitis [Recovered/Resolved]

NARRATIVE: CASE EVENT DATE: 20230101
